FAERS Safety Report 8515539-7 (Version None)
Quarter: 2012Q3

REPORT INFORMATION
  Report Type: 
  Country: None (occurrence: None)
  Receive Date: 20120717
  Receipt Date: 20120706
  Transmission Date: 20120928
  Serious: No
  Sender: FDA-Public Use
  Company Number: US-COVIDIEN/TYCO HEALTHCARE/MALLINCKRODT-T201202748

PATIENT
  Sex: Female

DRUGS (1)
  1. EXALGO [Suspect]
     Dosage: UNK

REACTIONS (1)
  - INTENTIONAL DRUG MISUSE [None]
